FAERS Safety Report 8553703-1 (Version None)
Quarter: 2012Q3

REPORT INFORMATION
  Report Type: 
  Country: None (occurrence: None)
  Receive Date: 20120725
  Receipt Date: 20120725
  Transmission Date: 20120928
  Serious: Yes (Life-Threatening, Hospitalization)
  Sender: FDA-Public Use
  Company Number: None

PATIENT
  Age: 61 Year
  Sex: Female
  Weight: 54.4316 kg

DRUGS (1)
  1. AZATHIOPRINE [Suspect]
     Indication: IMMUNOSUPPRESSION
     Dosage: 2 PILLS DAILY PO
     Route: 048
     Dates: start: 20111101, end: 20120723

REACTIONS (5)
  - WOUND [None]
  - PRURITUS [None]
  - ACUTE FEBRILE NEUTROPHILIC DERMATOSIS [None]
  - PHOTOSENSITIVITY REACTION [None]
  - URTICARIA [None]
